FAERS Safety Report 4850216-5 (Version None)
Quarter: 2005Q4

REPORT INFORMATION
  Report Type: 
  Country: None (occurrence: None)
  Receive Date: 20051123
  Receipt Date: 20050804
  Transmission Date: 20060501
  Serious: Yes (Other)
  Sender: FDA-Public Use
  Company Number: 2005111899

PATIENT
  Age: 87 Year
  Sex: Male
  Weight: 81.6475 kg

DRUGS (5)
  1. LIPITOR [Suspect]
     Indication: BLOOD CHOLESTEROL INCREASED
     Dosage: (80 MG)
     Dates: end: 20050804
  2. LIPITOR [Suspect]
     Indication: PROPHYLAXIS
     Dosage: (80 MG)
     Dates: end: 20050804
  3. ATENOLOL [Concomitant]
  4. ASPIRIN [Concomitant]
  5. DIURETICS [Concomitant]

REACTIONS (4)
  - DEHYDRATION [None]
  - DIARRHOEA [None]
  - INFECTION [None]
  - RHABDOMYOLYSIS [None]
